FAERS Safety Report 13431057 (Version 4)
Quarter: 2017Q3

REPORT INFORMATION
  Report Type: Report from Study
  Country: BR (occurrence: BR)
  Receive Date: 20170412
  Receipt Date: 20170726
  Transmission Date: 20171127
  Serious: Yes (Hospitalization, Other)
  Sender: FDA-Public Use
  Company Number: PHHY2017BR017561

PATIENT
  Sex: Female
  Weight: 68.7 kg

DRUGS (15)
  1. MORPHINE [Concomitant]
     Active Substance: MORPHINE
     Indication: PAIN
     Route: 065
  2. GLIFAGE [Concomitant]
     Active Substance: METFORMIN HYDROCHLORIDE
     Indication: DIABETES MELLITUS
     Dosage: 500 MG, QID
     Route: 065
  3. CYMBALTA [Concomitant]
     Active Substance: DULOXETINE HYDROCHLORIDE
     Indication: DIABETIC NEUROPATHY
     Dosage: 60 MG, BID
     Route: 065
  4. IMURAN [Concomitant]
     Active Substance: AZATHIOPRINE
     Indication: ARTERITIS
     Dosage: 50 MG, QID
     Route: 065
  5. HIGROTON [Concomitant]
     Active Substance: CHLORTHALIDONE
     Indication: HYPERTENSION
     Dosage: 12.5 MG, QD
     Route: 065
  6. EUTIROX [Concomitant]
     Active Substance: LEVOTHYROXINE SODIUM
     Indication: AUTOIMMUNE THYROIDITIS
     Dosage: 50 MG, QD
     Route: 065
  7. CARDIBEN [Concomitant]
     Indication: HYPERTENSION
     Dosage: 60 MG, TID
     Route: 065
  8. TRAYENTA [Concomitant]
     Active Substance: LINAGLIPTIN
     Indication: DIABETES MELLITUS
     Dosage: 5 MG, QD
     Route: 065
  9. CRESTOR [Concomitant]
     Active Substance: ROSUVASTATIN CALCIUM
     Indication: HYPERTENSION
     Dosage: 40 MG, QD
     Route: 065
  10. SELOZOK [Concomitant]
     Active Substance: METOPROLOL SUCCINATE
     Indication: HYPERTENSION
     Dosage: 100 MG, BID
     Route: 065
  11. SANDOSTATIN LAR DEPOT [Suspect]
     Active Substance: OCTREOTIDE ACETATE
     Indication: PANCREATIC NEUROENDOCRINE TUMOUR
     Dosage: 30 MG, QMO (EVERY 28 DAYS)
     Route: 030
     Dates: start: 201609
  12. SANDOSTATIN LAR DEPOT [Suspect]
     Active Substance: OCTREOTIDE ACETATE
     Indication: ACROMEGALY
  13. ASPIRIN. [Concomitant]
     Active Substance: ASPIRIN
     Indication: HYPERTENSION
     Dosage: 100 MG, QD
     Route: 065
  14. THIOCTACID [Concomitant]
     Active Substance: THIOCTIC ACID
     Indication: DIABETIC NEUROPATHY
     Dosage: 150 MG, QD
     Route: 065
  15. BUSCOPAN [Concomitant]
     Active Substance: BUTYLSCOPOLAMINE BROMIDE
     Indication: PRODUCT USED FOR UNKNOWN INDICATION
     Route: 065

REACTIONS (27)
  - Blood gastrin increased [Unknown]
  - Oedema peripheral [Unknown]
  - Concomitant disease aggravated [Unknown]
  - Cardiac disorder [Unknown]
  - Weight decreased [Unknown]
  - Hypertension [Unknown]
  - Hypersensitivity [Unknown]
  - Hormone level abnormal [Unknown]
  - Pain [Unknown]
  - Malignant neoplasm progression [Unknown]
  - Oesophageal disorder [Unknown]
  - Gait inability [Unknown]
  - Sensory loss [Unknown]
  - Malaise [Unknown]
  - Vasculitis [Unknown]
  - Nodule [Unknown]
  - Diarrhoea [Unknown]
  - Injury [Unknown]
  - Acute pulmonary oedema [Unknown]
  - Angioedema [Unknown]
  - Metastases to oesophagus [Unknown]
  - Arteritis [Not Recovered/Not Resolved]
  - Diabetic neuropathy [Unknown]
  - Neuropathy peripheral [Unknown]
  - Hereditary angioedema [Unknown]
  - Dyschezia [Unknown]
  - Headache [Unknown]
